FAERS Safety Report 7000455-2 (Version None)
Quarter: 2010Q3

REPORT INFORMATION
  Report Type: 
  Country: None (occurrence: None)
  Receive Date: 20100920
  Receipt Date: 20091021
  Transmission Date: 20110219
  Serious: No
  Sender: FDA-Public Use
  Company Number: US-ASTRAZENECA-2009SE21659

PATIENT
  Age: 43 Year
  Sex: Female
  Weight: 70.8 kg

DRUGS (1)
  1. SEROQUEL [Suspect]
     Indication: SLEEP DISORDER
     Dosage: 300 MG-450 MG DAILY
     Route: 048
     Dates: start: 19990101

REACTIONS (4)
  - BACK PAIN [None]
  - MOOD ALTERED [None]
  - MUSCLE SPASMS [None]
  - WEIGHT INCREASED [None]
